FAERS Safety Report 5413408-2 (Version None)
Quarter: 2007Q3

REPORT INFORMATION
  Report Type: 
  Country: None (occurrence: None)
  Receive Date: 20070810
  Receipt Date: 20070731
  Transmission Date: 20080115
  Serious: Yes (Hospitalization)
  Sender: FDA-Public Use
  Company Number: RENA-12228

PATIENT
  Age: 62 Year
  Sex: Male
  Weight: 66.7 kg

DRUGS (13)
  1. RENAGEL - 250 MG TABLET. MFR: [Suspect]
     Indication: HYPERPHOSPHATAEMIA
     Dosage: 1.5 G TID PO
     Route: 048
     Dates: end: 20060918
  2. RENAGEL [Suspect]
     Indication: HYPERPHOSPHATAEMIA
     Dosage: 1.5 G TID PO
     Route: 048
     Dates: start: 20070622
  3. LAXAID (SODIUM PICOSULFATE) [Suspect]
     Indication: CONSTIPATION
     Dosage: 2 TAB ONCE PO
     Route: 048
     Dates: start: 20060918
  4. TELEMINSOFT. MFR: HUNAI YAKUHINKOGYO [Suspect]
     Indication: CONSTIPATION
     Dates: start: 20060918
  5. SELBEX. MFR: EISAI [Concomitant]
  6. CALTAN (CALCIUM CARBONATE) [Concomitant]
  7. STOGAR (LAFUTIDINE) [Concomitant]
  8. FUROSEMIDE [Concomitant]
  9. LANDSEN. MFR: SUMITOMO CHEM. [Concomitant]
  10. MICARDIS. MFR: BOEHRINGER INGELHEIM [Concomitant]
  11. FULSTAN (FALECALCITRIOL) [Concomitant]
  12. CARDENALIN. MFR: PFIZER LABORATORIES [Concomitant]
  13. CALBLOCK (AZENIDIPINE) [Concomitant]

REACTIONS (7)
  - CONSTIPATION [None]
  - DECREASED APPETITE [None]
  - DIVERTICULAR PERFORATION [None]
  - DIVERTICULITIS [None]
  - HAEMODIALYSIS [None]
  - ORAL INTAKE REDUCED [None]
  - PERITONITIS [None]
